FAERS Safety Report 5774093-3 (Version None)
Quarter: 2008Q2

REPORT INFORMATION
  Report Type: 
  Country: None (occurrence: None)
  Receive Date: 20080616
  Receipt Date: 20080611
  Transmission Date: 20081010
  Serious: Yes (Hospitalization, Other)
  Sender: FDA-Public Use
  Company Number: US-MERCK-0711USA05510

PATIENT
  Age: 43 Year
  Sex: Female
  Weight: 58 kg

DRUGS (2)
  1. FOSAMAX [Suspect]
     Indication: OSTEOPOROSIS
     Route: 048
     Dates: end: 20061201
  2. FOSAMAX PLUS D [Suspect]
     Route: 048

REACTIONS (21)
  - ANXIETY [None]
  - ARTHRITIS [None]
  - ASTHMA [None]
  - CARPAL TUNNEL SYNDROME [None]
  - DENTAL CARIES [None]
  - DEPRESSION [None]
  - DRUG HYPERSENSITIVITY [None]
  - DYSPNOEA [None]
  - GASTROINTESTINAL DISORDER [None]
  - HYPERTENSION [None]
  - HYPOAESTHESIA [None]
  - LUNG DISORDER [None]
  - MIGRAINE [None]
  - ORTHODONTIC APPLIANCE COMPLICATION [None]
  - OSTEONECROSIS [None]
  - PARAESTHESIA [None]
  - PERICORONITIS [None]
  - PERIODONTITIS [None]
  - SEASONAL ALLERGY [None]
  - THERMAL BURN [None]
  - TOOTH LOSS [None]
